FAERS Safety Report 16082028 (Version 1)
Quarter: 2019Q1

REPORT INFORMATION
  Report Type: Spontaneous
  Country: JP (occurrence: JP)
  Receive Date: 20190317
  Receipt Date: 20190317
  Transmission Date: 20190418
  Serious: Yes (Hospitalization, Other)
  Sender: FDA-Public Use
  Company Number: PHJP2018JP020342

PATIENT
  Age: 58 Year
  Sex: Male
  Weight: 61.2 kg

DRUGS (12)
  1. AFINITOR [Suspect]
     Active Substance: EVEROLIMUS
     Dosage: 5 MG, QD
     Route: 048
     Dates: end: 20190219
  2. INSULIN [Concomitant]
     Active Substance: INSULIN NOS
     Indication: DIABETES MELLITUS
     Dosage: UNK
     Route: 065
  3. LANREOTIDE [Concomitant]
     Active Substance: LANREOTIDE
     Indication: GLUCAGONOMA
     Dosage: 120 MG, UNK
     Route: 065
  4. SUREPOST [Concomitant]
     Active Substance: REPAGLINIDE
     Indication: DIABETES MELLITUS
     Dosage: 0.25 MG, TID
     Route: 048
     Dates: start: 201809, end: 20190306
  5. SOMATULINE [Concomitant]
     Active Substance: LANREOTIDE ACETATE
     Indication: GLUCAGONOMA
     Dosage: 120 MG, UNK
     Route: 058
     Dates: start: 20180201
  6. EQUMET [Suspect]
     Active Substance: METFORMIN HYDROCHLORIDE\VILDAGLIPTIN
     Indication: TYPE 2 DIABETES MELLITUS
     Dosage: 1DF:METFORMIN 500MG/VILDAGLIPTIN 50MG, UNK
     Route: 048
     Dates: start: 201711
  7. AFINITOR [Suspect]
     Active Substance: EVEROLIMUS
     Indication: GLUCAGONOMA
     Dosage: 10 MG, QD
     Route: 048
     Dates: start: 201711
  8. AZILVA [Concomitant]
     Active Substance: AZILSARTAN KAMEDOXOMIL
     Indication: HYPERTENSION
     Dosage: 20 MG, QD
     Route: 048
     Dates: start: 20181030, end: 20190301
  9. FERROUS CITRATE NA [Concomitant]
     Active Substance: SODIUM FERROUS CITRATE
     Indication: ANAEMIA
     Dosage: 50 MG, BID
     Route: 048
     Dates: start: 201807
  10. METFORMIN HYDROCHLORIDE. [Concomitant]
     Active Substance: METFORMIN HYDROCHLORIDE
     Indication: DIABETES MELLITUS
     Dosage: 250 MG, BID
     Route: 048
     Dates: start: 201808
  11. PREDONINE [Concomitant]
     Active Substance: PREDNISOLONE
     Indication: PRODUCT USED FOR UNKNOWN INDICATION
     Dosage: 30 MG, UNK
     Route: 065
  12. AMLODIPINE [Concomitant]
     Active Substance: AMLODIPINE BESYLATE
     Indication: HYPERTENSION
     Dosage: 5 MG, QD
     Route: 048
     Dates: start: 20181127, end: 20190226

REACTIONS (8)
  - Glucagonoma [Unknown]
  - Blood alkaline phosphatase increased [Unknown]
  - Cough [Unknown]
  - Pyrexia [Recovering/Resolving]
  - Platelet count decreased [Unknown]
  - Interstitial lung disease [Recovering/Resolving]
  - Malignant neoplasm progression [Unknown]
  - Pancreatic mass [Unknown]

NARRATIVE: CASE EVENT DATE: 20190201
